FAERS Safety Report 15704087 (Version 2)
Quarter: 2018Q4

REPORT INFORMATION
  Report Type: Spontaneous
  Country: US (occurrence: US)
  Receive Date: 20181210
  Receipt Date: 20181212
  Transmission Date: 20190205
  Serious: Yes (Other)
  Sender: FDA-Public Use
  Company Number: US-PFIZER INC-2018501985

PATIENT
  Age: 68 Year
  Sex: Female
  Weight: 102 kg

DRUGS (7)
  1. EXTAVIA [Concomitant]
     Active Substance: INTERFERON BETA-1B
  2. HYDROCHLOROTHIAZIDE. [Concomitant]
     Active Substance: HYDROCHLOROTHIAZIDE
     Indication: HYPERTENSION
     Dosage: 12.5 MG, 1X/DAY (ONCE A DAY)
     Route: 048
  3. IBRANCE [Suspect]
     Active Substance: PALBOCICLIB
     Indication: BREAST CANCER STAGE IV
     Dosage: 125 MG, CYCLIC (DAILY FOR 3 WEEKS THEN OFF ONE WEEK)
     Route: 048
  4. NAPROXEN. [Concomitant]
     Active Substance: NAPROXEN
     Indication: PAIN
     Dosage: 500 MG, 2X/DAY (1 TABLET IN THE MORNING AND 1 AT NIGHT)
     Route: 048
  5. OMEGA 3 [Concomitant]
     Active Substance: OMEGA-3 FATTY ACIDS
     Dosage: 2000 MG, 1X/DAY (1 CAPSULE A DAY)
     Route: 048
  6. GLUCOSAMINE CHONDROITIN [Concomitant]
     Active Substance: CHONDROITIN SULFATE (BOVINE)\GLUCOSAMINE HYDROCHLORIDE
     Dosage: 1 DF, UNK
     Route: 048
  7. LETROZOLE. [Concomitant]
     Active Substance: LETROZOLE

REACTIONS (7)
  - Onychomadesis [Unknown]
  - Alopecia [Unknown]
  - Fatigue [Unknown]
  - Dry skin [Unknown]
  - Asthenia [Unknown]
  - Neuropathy peripheral [Not Recovered/Not Resolved]
  - Carpal tunnel syndrome [Unknown]

NARRATIVE: CASE EVENT DATE: 2018
